FAERS Safety Report 8375888 (Version 2)
Quarter: 2013Q1

REPORT INFORMATION
  Report Type: Report from Study
  Country: US (occurrence: US)
  Receive Date: 20120129
  Receipt Date: 20130129
  Transmission Date: 20140127
  Serious: No
  Sender: FDA-Public Use
  Company Number: US-ABBOTT-11P-163-0886773-00

PATIENT
  Age: 54 Year
  Sex: Female
  Weight: 65.83 kg

DRUGS (11)
  1. HUMIRA 40 MG/0.8 ML PEN [Suspect]
     Indication: PSORIASIS
     Dates: start: 20111219
  2. UNKNOWN BLOOD PRESSURE MEDICATION [Concomitant]
     Indication: HYPERTENSION
  3. UNKNOWN CHOLESTEROL MEDICATION [Concomitant]
     Indication: BLOOD CHOLESTEROL INCREASED
  4. UNKNOWN THYROID MEDICATION [Concomitant]
     Indication: HYPOTHYROIDISM
  5. UNKNOWN GERD MEDICATION [Concomitant]
     Indication: GASTROOESOPHAGEAL REFLUX DISEASE
  6. COHOSH [Concomitant]
     Indication: SUPPLEMENTATION THERAPY
  7. FOLIC ACID [Concomitant]
     Indication: FOLATE DEFICIENCY
  8. LANSOPRAZOLE [Concomitant]
     Indication: GASTRIC DISORDER
  9. LEVOTHYROXINE [Concomitant]
     Indication: THYROID DISORDER
  10. LIPITOR [Concomitant]
     Indication: BLOOD CHOLESTEROL INCREASED
  11. METHOTREXATE [Concomitant]
     Indication: PSORIASIS

REACTIONS (5)
  - Burning sensation [Recovered/Resolved]
  - Burning sensation [Recovered/Resolved]
  - Hypoaesthesia [Recovered/Resolved]
  - Paraesthesia [Recovered/Resolved]
  - Burning sensation [Recovered/Resolved]
